FAERS Safety Report 15933068 (Version 1)
Quarter: 2019Q1

REPORT INFORMATION
  Report Type: Spontaneous
  Country: US (occurrence: US)
  Receive Date: 20190207
  Receipt Date: 20190207
  Transmission Date: 20190417
  Serious: No
  Sender: FDA-Public Use
  Company Number: US-KYOWAKIRIN-2018BKK012213

PATIENT

DRUGS (2)
  1. MULTIVITAMIN                       /07504101/ [Concomitant]
     Active Substance: VITAMINS
     Indication: PRODUCT USED FOR UNKNOWN INDICATION
     Dosage: UNKNOWN
     Route: 065
  2. CRYSVITA [Suspect]
     Active Substance: BUROSUMAB-TWZA
     Indication: HYPOPHOSPHATAEMIA
     Dosage: 20 MG, 1X/2 WEEKS
     Route: 058
     Dates: start: 20181101

REACTIONS (1)
  - Pain in extremity [Unknown]

NARRATIVE: CASE EVENT DATE: 201811
